FAERS Safety Report 10602446 (Version 1)
Quarter: 2014Q4

REPORT INFORMATION
  Report Type: Spontaneous
  Country: US (occurrence: US)
  Receive Date: 20141124
  Receipt Date: 20141124
  Transmission Date: 20150529
  Serious: No
  Sender: FDA-Public Use
  Company Number: US-GILEAD-2014-0123799

PATIENT
  Age: 70 Year
  Sex: Female

DRUGS (10)
  1. LETAIRIS [Suspect]
     Active Substance: AMBRISENTAN
     Indication: PULMONARY ARTERIAL HYPERTENSION
     Route: 065
     Dates: start: 20140922, end: 20141104
  2. FUROSEMIDE. [Concomitant]
     Active Substance: FUROSEMIDE
  3. BUPROPION [Concomitant]
     Active Substance: BUPROPION
  4. OMEPRAZOLE. [Concomitant]
     Active Substance: OMEPRAZOLE
  5. SYNTHROID [Concomitant]
     Active Substance: LEVOTHYROXINE SODIUM
  6. REMODULIN [Concomitant]
     Active Substance: TREPROSTINIL
  7. MIRTAZAPINE. [Concomitant]
     Active Substance: MIRTAZAPINE
  8. WARFARIN [Concomitant]
     Active Substance: WARFARIN
  9. ADCIRCA [Concomitant]
     Active Substance: TADALAFIL
  10. PENTOXIFYLLINE. [Concomitant]
     Active Substance: PENTOXIFYLLINE

REACTIONS (2)
  - Secretion discharge [Recovered/Resolved]
  - Vomiting [Recovered/Resolved]

NARRATIVE: CASE EVENT DATE: 20141029
